FAERS Safety Report 9303787 (Version 1)
Quarter: 2013Q2

REPORT INFORMATION
  Report Type: Spontaneous
  Country: IT (occurrence: IT)
  Receive Date: 20130522
  Receipt Date: 20130522
  Transmission Date: 20140414
  Serious: Yes (Death)
  Sender: FDA-Public Use
  Company Number: IT-TEVA-405655ISR

PATIENT
  Age: 75 Year
  Sex: Male
  Weight: 68 kg

DRUGS (5)
  1. VINCRISTINE [Suspect]
     Indication: B-CELL LYMPHOMA
     Dosage: 2MG, CYCLIAL
     Route: 041
     Dates: start: 20130418, end: 20130418
  2. RITUXIMAB [Suspect]
     Indication: B-CELL LYMPHOMA
     Dosage: 668MG, CYCLIAL
     Route: 041
     Dates: start: 20130418, end: 20130418
  3. CICLOFOSFAMIDE [Suspect]
     Indication: B-CELL LYMPHOMA
     Dosage: 1335MG, CYCLIAL
     Route: 041
     Dates: start: 20130418, end: 20130418
  4. PREDNISONE [Suspect]
     Indication: B-CELL LYMPHOMA
     Dosage: 50MG, CYCLIAL
     Route: 041
     Dates: start: 20130418, end: 20130422
  5. LENOGRASTIM [Concomitant]
     Indication: FEBRILE NEUTROPENIA
     Dates: start: 20130419, end: 20130423

REACTIONS (2)
  - Febrile neutropenia [Fatal]
  - Pneumonia [Fatal]
